FAERS Safety Report 21694687 (Version 3)
Quarter: 2022Q4

REPORT INFORMATION
  Report Type: Report from Study
  Country: AT (occurrence: AT)
  Receive Date: 20221207
  Receipt Date: 20221227
  Transmission Date: 20230113
  Serious: Yes (Hospitalization, Other)
  Sender: FDA-Public Use
  Company Number: AT-ROCHE-3017431

PATIENT
  Age: 48 Year
  Sex: Female
  Weight: 58 kg

DRUGS (54)
  1. TRASTUZUMAB DERUXTECAN [Suspect]
     Active Substance: TRASTUZUMAB DERUXTECAN
     Indication: HER2 positive breast cancer
     Dosage: 5.4 MG/KG, ONCE EVERY 3 WK (MOST RECENT DOSE PRIOR TO AE 31/JAN/2022 1 TIMES IN 3 WEEK)
     Route: 042
     Dates: start: 20220110
  2. PERTUZUMAB [Suspect]
     Active Substance: PERTUZUMAB
     Indication: HER2 positive breast cancer
     Dosage: 420 MG, ONCE EVERY 3 WK
     Route: 042
     Dates: start: 20190724, end: 20190912
  3. TRASTUZUMAB [Suspect]
     Active Substance: TRASTUZUMAB
     Indication: HER2 positive breast cancer
     Dosage: 6 MG/KG, ONCE EVERY 3 WK
     Route: 042
     Dates: start: 20190724, end: 20190912
  4. ADO-TRASTUZUMAB EMTANSINE [Suspect]
     Active Substance: ADO-TRASTUZUMAB EMTANSINE
     Indication: HER2 positive breast cancer
     Dosage: 2.88 MG/KG, ONCE EVERY 3 WK
     Route: 042
     Dates: start: 20200703, end: 20200703
  5. ADO-TRASTUZUMAB EMTANSINE [Suspect]
     Active Substance: ADO-TRASTUZUMAB EMTANSINE
     Dosage: 3.6 MG/KG, ONCE EVERY 3 WK
     Route: 042
     Dates: start: 20191014, end: 20200518
  6. CAPECITABINE [Suspect]
     Active Substance: CAPECITABINE
     Indication: HER2 positive breast cancer
     Dosage: 500 MG
     Route: 042
     Dates: start: 20200923, end: 20201220
  7. CAPECITABINE [Suspect]
     Active Substance: CAPECITABINE
     Dosage: 500 MG 1 TIMES IN 4 DAY (MOST RECENT DOSE PRIOR TO AE 09/DEC/2021)
     Route: 042
     Dates: start: 20210109, end: 20211209
  8. PACLITAXEL [Suspect]
     Active Substance: PACLITAXEL
     Indication: HER2 positive breast cancer
     Dosage: 260 MG/M2, ONCE EVERY 3 WK
     Route: 042
     Dates: start: 20190724, end: 20190912
  9. LAPATINIB [Suspect]
     Active Substance: LAPATINIB
     Indication: HER2 positive breast cancer
     Dosage: 250 MG, QOD (4 TIMES IN 1 DAY) MOST RECENT DOSE PRIOR TO THE EVENT: 09/JAN/2021
     Route: 048
     Dates: start: 20200923, end: 20201228
  10. LAPATINIB [Suspect]
     Active Substance: LAPATINIB
     Dosage: 250 MG, QID 4 TIMES IN 1 DAY
     Route: 048
     Dates: start: 20210109, end: 20211216
  11. OLANZAPINE [Concomitant]
     Active Substance: OLANZAPINE
     Indication: Product used for unknown indication
     Dosage: OTHER 0-0-1/2
     Route: 048
     Dates: start: 20190904, end: 20200926
  12. OLANZAPINE [Concomitant]
     Active Substance: OLANZAPINE
     Dosage: OTHER 0-0-1/2
     Route: 048
     Dates: start: 20190821, end: 20190904
  13. NEULASTA [Concomitant]
     Active Substance: PEGFILGRASTIM
     Indication: Product used for unknown indication
     Dosage: UNK
     Route: 065
     Dates: start: 20220420
  14. URSODIOL [Concomitant]
     Active Substance: URSODIOL
     Indication: Gamma-glutamyltransferase increased
     Dosage: UNK
     Route: 065
     Dates: start: 20220401
  15. PANTOPRAZOLE SODIUM [Concomitant]
     Active Substance: PANTOPRAZOLE SODIUM
     Indication: COVID-19
     Dosage: 40 MG, QD
     Route: 048
     Dates: start: 20190701
  16. PANTOPRAZOLE SODIUM [Concomitant]
     Active Substance: PANTOPRAZOLE SODIUM
     Dosage: 40 MG, QD
     Route: 048
     Dates: start: 20210222, end: 20210302
  17. DRONABINOL [Concomitant]
     Active Substance: DRONABINOL
     Indication: Product used for unknown indication
     Dosage: 2.5 %
     Route: 048
     Dates: start: 20190716, end: 20210804
  18. DRONABINOL [Concomitant]
     Active Substance: DRONABINOL
     Dosage: 2.5 %
     Route: 048
     Dates: start: 20210705
  19. CEOLAT [Concomitant]
     Indication: Product used for unknown indication
     Dosage: 1 G
     Route: 048
     Dates: start: 20190815
  20. ZOFRAN [Concomitant]
     Active Substance: ONDANSETRON HYDROCHLORIDE
     Indication: COVID-19
     Dosage: 8 MG, AS NEEDED
     Route: 048
     Dates: start: 20190701
  21. ZOFRAN [Concomitant]
     Active Substance: ONDANSETRON HYDROCHLORIDE
     Dosage: 8 MG, AS NEEDED PRN
     Route: 042
     Dates: start: 20190704, end: 20200703
  22. ZOFRAN [Concomitant]
     Active Substance: ONDANSETRON HYDROCHLORIDE
     Dosage: 2 TIMES IN 1 DAY
     Route: 067
     Dates: start: 20190705, end: 20190914
  23. ZOFRAN [Concomitant]
     Active Substance: ONDANSETRON HYDROCHLORIDE
     Dosage: 4 MG, QD
     Route: 048
     Dates: start: 20210302, end: 20210302
  24. ZOFRAN [Concomitant]
     Active Substance: ONDANSETRON HYDROCHLORIDE
     Dosage: 8 MG, ONCE EVERY 3 WK
     Route: 042
     Dates: start: 20220110
  25. VALACYCLOVIR HYDROCHLORIDE [Concomitant]
     Active Substance: VALACYCLOVIR HYDROCHLORIDE
     Indication: Product used for unknown indication
     Dosage: 500 MG, QD
     Route: 048
     Dates: start: 20190716, end: 20191011
  26. LOVENOX [Concomitant]
     Active Substance: ENOXAPARIN SODIUM
     Indication: COVID-19
     Dosage: 40 MG, QD
     Route: 048
     Dates: start: 20210302, end: 20210305
  27. DEXAMETHASONE [Concomitant]
     Active Substance: DEXAMETHASONE
     Indication: COVID-19
     Dosage: 8 MG
     Route: 042
     Dates: start: 20190704, end: 20190912
  28. DEXAMETHASONE [Concomitant]
     Active Substance: DEXAMETHASONE
     Dosage: 8 MG
     Route: 048
     Dates: start: 20190705, end: 20190914
  29. DEXAMETHASONE [Concomitant]
     Active Substance: DEXAMETHASONE
     Dosage: 6 MG, QD
     Route: 048
     Dates: start: 20210302, end: 20210304
  30. DEXAMETHASONE [Concomitant]
     Active Substance: DEXAMETHASONE
     Dosage: 8 MG, ONCE EVERY 3 WK
     Route: 042
     Dates: start: 20220110
  31. DEXAMETHASONE [Concomitant]
     Active Substance: DEXAMETHASONE
     Dosage: UNK
     Route: 065
     Dates: start: 20220111, end: 20220112
  32. DEXAMETHASONE [Concomitant]
     Active Substance: DEXAMETHASONE
     Dosage: UNK
     Route: 065
     Dates: start: 20220113, end: 20220114
  33. DEXAMETHASONE [Concomitant]
     Active Substance: DEXAMETHASONE
     Dosage: UNK
     Route: 065
     Dates: start: 20220115, end: 20220323
  34. AMOXICILLIN\CLAVULANATE POTASSIUM [Concomitant]
     Active Substance: AMOXICILLIN\CLAVULANATE POTASSIUM
     Indication: Influenza
     Dosage: 2 TIMES IN 1 DAY
     Route: 048
     Dates: start: 20200527, end: 20200602
  35. HYDROMORPHONE HYDROCHLORIDE [Concomitant]
     Active Substance: HYDROMORPHONE HYDROCHLORIDE
     Indication: Product used for unknown indication
     Dosage: 1.3 MG, AS NEEDED
     Route: 048
     Dates: start: 20190716
  36. HYDROMORPHONE HYDROCHLORIDE [Concomitant]
     Active Substance: HYDROMORPHONE HYDROCHLORIDE
     Dosage: 2 MG, BID
     Route: 048
     Dates: start: 20220207
  37. HYDROMORPHONE HYDROCHLORIDE [Concomitant]
     Active Substance: HYDROMORPHONE HYDROCHLORIDE
     Dosage: 2 MG, BID
     Route: 048
     Dates: start: 20190716, end: 20200927
  38. ACETAMINOPHEN [Concomitant]
     Active Substance: ACETAMINOPHEN
     Indication: Product used for unknown indication
     Dosage: 500 MG, AS NEEDED
     Route: 048
     Dates: start: 20190701
  39. NEURONTIN [GABAPENTIN] [Concomitant]
     Indication: Product used for unknown indication
     Dosage: 300 MG, BID
     Route: 048
     Dates: start: 201908, end: 201908
  40. CALCIDURAN [ASCORBIC ACID;CALCIUM PHOSPHATE;CITRIC ACID;COLECALCIFEROL [Concomitant]
     Indication: Product used for unknown indication
     Dosage: 500 MG
     Route: 048
     Dates: start: 20190717
  41. POLYETHYLENE GLYCOL 4000 [Concomitant]
     Active Substance: POLYETHYLENE GLYCOL 4000
     Indication: Product used for unknown indication
     Dosage: 10 G, ONCE EVERY 3 D
     Route: 048
     Dates: start: 20190705
  42. EMEND [Concomitant]
     Active Substance: APREPITANT
     Indication: Product used for unknown indication
     Dosage: 2 MG
     Dates: start: 20190716, end: 20200927
  43. EMEND [Concomitant]
     Active Substance: APREPITANT
     Dosage: UNK
     Route: 065
     Dates: start: 20220621
  44. SUCRALAN [Concomitant]
     Indication: Product used for unknown indication
     Dosage: 1 G, AS NEEDED
     Route: 048
     Dates: start: 20190701
  45. EUTHYROX [Concomitant]
     Active Substance: LEVOTHYROXINE SODIUM
     Indication: Product used for unknown indication
     Dosage: 75 UG, QD
     Route: 048
     Dates: end: 201906
  46. EUTHYROX [Concomitant]
     Active Substance: LEVOTHYROXINE SODIUM
     Dosage: 50 UG, QD
     Route: 048
     Dates: start: 20190703, end: 20200929
  47. EUTHYROX [Concomitant]
     Active Substance: LEVOTHYROXINE SODIUM
     Dosage: 25 UG, QD
     Route: 048
     Dates: start: 20200930, end: 20210108
  48. ALPRAZOLAM [Concomitant]
     Active Substance: ALPRAZOLAM
     Indication: Product used for unknown indication
     Dosage: 0.5 MG, AS NEEDED
     Route: 048
     Dates: start: 20190715
  49. LENDORM [Concomitant]
     Active Substance: BROTIZOLAM
     Indication: Insomnia
     Dosage: 0.25 MG, AS NEEDED
     Route: 048
     Dates: start: 20211229
  50. ACETAMINOPHEN [Concomitant]
     Active Substance: ACETAMINOPHEN
     Indication: COVID-19
     Dosage: 1 G, AS NEEDED
     Route: 048
     Dates: start: 20210302, end: 20210303
  51. TRAZODONE HYDROCHLORIDE [Concomitant]
     Active Substance: TRAZODONE HYDROCHLORIDE
     Indication: Product used for unknown indication
     Dosage: 150 MG, QD
     Route: 048
     Dates: start: 20190716, end: 20200926
  52. LOPERAMIDE HYDROCHLORIDE [Concomitant]
     Active Substance: LOPERAMIDE HYDROCHLORIDE
     Indication: Diarrhoea
     Dosage: PRN
     Route: 048
     Dates: start: 20210215
  53. CITALOPRAM [Concomitant]
     Active Substance: CITALOPRAM HYDROBROMIDE
     Indication: Product used for unknown indication
     Dosage: 20 MG, QD
     Route: 048
     Dates: start: 20190715
  54. ZOFRAN [Concomitant]
     Active Substance: ONDANSETRON HYDROCHLORIDE
     Indication: COVID-19
     Dosage: PRN
     Dates: start: 20190701, end: 20190701

REACTIONS (5)
  - Intracranial pressure increased [Recovered/Resolved]
  - Insomnia [Not Recovered/Not Resolved]
  - Iron deficiency anaemia [Recovered/Resolved]
  - Gamma-glutamyltransferase increased [Not Recovered/Not Resolved]
  - Pyrexia [Recovered/Resolved]

NARRATIVE: CASE EVENT DATE: 20211227
